FAERS Safety Report 6752333-1 (Version None)
Quarter: 2010Q2

REPORT INFORMATION
  Report Type: 
  Country: None (occurrence: None)
  Receive Date: 20100602
  Receipt Date: 20100601
  Transmission Date: 20101027
  Serious: Yes (Life-Threatening, Other)
  Sender: FDA-Public Use
  Company Number: GXKR2010DE06032

PATIENT
  Sex: Male
  Weight: 100 kg

DRUGS (1)
  1. SIMVASTATIN 1A PHARMA (NGX) [Suspect]
     Dosage: 40 MG, UNK
     Route: 048

REACTIONS (2)
  - ANGINA PECTORIS [None]
  - CARDIOMYOPATHY [None]
